FAERS Safety Report 6306028-9 (Version None)
Quarter: 2009Q3

REPORT INFORMATION
  Report Type: 
  Country: None (occurrence: None)
  Receive Date: 20090812
  Receipt Date: 20090805
  Transmission Date: 20100115
  Serious: Yes (Other)
  Sender: FDA-Public Use
  Company Number: BR-JNJFOC-20090802635

PATIENT
  Age: 35 Year
  Sex: Male
  Weight: 32.66 kg

DRUGS (5)
  1. TYLEX [Suspect]
     Indication: INTERVERTEBRAL DISC PROTRUSION
     Route: 065
  2. HYDROCHLOROTHIAZIDE [Concomitant]
     Indication: HYPERTENSION
     Route: 065
  3. ATENOLOL [Concomitant]
     Indication: HYPERTENSION
     Route: 065
  4. NIFEDIPINE [Concomitant]
     Indication: HYPERTENSION
     Route: 065
  5. OMEPRAZOLE [Concomitant]
     Indication: ABDOMINAL PAIN UPPER
     Route: 065

REACTIONS (5)
  - DIZZINESS [None]
  - ERYTHEMA [None]
  - PRURITUS GENERALISED [None]
  - SWELLING FACE [None]
  - VOMITING [None]
